FAERS Safety Report 8912671 (Version 2)
Quarter: 2012Q4

REPORT INFORMATION
  Report Type: Report from Study
  Country: JP (occurrence: JP)
  Receive Date: 20121116
  Receipt Date: 20121205
  Transmission Date: 20130627
  Serious: Yes (Life-Threatening)
  Sender: FDA-Public Use
  Company Number: JP-OTSUKA-JP-2012-16819

PATIENT
  Age: 74 Year
  Sex: Male
  Weight: 53 kg

DRUGS (14)
  1. SAMSCA [Suspect]
     Indication: FLUID RETENTION
     Dosage: 15 Mg milligram(s), qam
     Route: 048
     Dates: start: 20120412, end: 20120417
  2. MAINTATE [Concomitant]
     Dosage: 2.5 Mg milligram(s), daily dose
     Route: 048
  3. WARFARIN [Concomitant]
     Dosage: 3 Mg milligram(s), daily dose
     Route: 048
  4. PARIET [Concomitant]
     Indication: PROPHYLAXIS
     Dosage: 10 Mg milligram(s), daily dose
     Route: 048
  5. FRANDOL [Concomitant]
     Dosage: 40 Mg milligram(s), daily dose
     Route: 061
  6. BAYASPIRIN [Concomitant]
     Indication: PROPHYLAXIS
     Dosage: 100 Mg milligram(s), daily dose
     Route: 048
  7. MUCODYNE [Concomitant]
     Dosage: 750 Mg milligram(s), daily dose
     Route: 048
  8. ASTOMIN [Concomitant]
     Dosage: 30 Mg milligram(s), daily dose
     Route: 048
  9. LASIX [Concomitant]
     Indication: CARDIAC FAILURE
     Dosage: 120 Mg milligram(s), daily dose
     Route: 048
  10. ALLEGRA [Concomitant]
     Dosage: 120 Mg milligram(s), daily dose
     Route: 048
  11. FLUITRAN [Concomitant]
     Dosage: 2 Mg milligram(s), daily dose
     Route: 048
  12. SLOW K [Concomitant]
     Indication: PROPHYLAXIS
     Dosage: 1200 Mg milligram(s), daily dose
     Route: 048
  13. DEPAS [Concomitant]
     Dosage: 0.5 Mg milligram(s), daily dose
     Route: 048
  14. LENDORMIN D [Concomitant]
     Dosage: 0.25 Mg milligram(s), daily dose
     Route: 048

REACTIONS (2)
  - Thirst [Recovered/Resolved]
  - Cardiac failure [Not Recovered/Not Resolved]
